FAERS Safety Report 6598174-X (Version None)
Quarter: 2010Q1

REPORT INFORMATION
  Report Type: 
  Country: None (occurrence: None)
  Receive Date: 20100224
  Receipt Date: 20050105
  Transmission Date: 20100710
  Serious: No
  Sender: FDA-Public Use
  Company Number: US-ALLERGAN-200411286

PATIENT
  Age: 56 Year
  Sex: Male
  Weight: 76.818 kg

DRUGS (4)
  1. BOTOX [Suspect]
     Indication: MUSCLE SPASTICITY
     Dosage: 50UNITS, PRN
     Route: 030
  2. BOTOX [Suspect]
     Indication: ANAL FISSURE
  3. DILANTIN [Concomitant]
     Indication: CONVULSION
     Dosage: 390MG, QD
  4. NULYTELY [Concomitant]
     Indication: FAECES HARD

REACTIONS (4)
  - ANORECTAL DISORDER [None]
  - ASTHENIA [None]
  - CHILLS [None]
  - HOT FLUSH [None]
